FAERS Safety Report 19175423 (Version 3)
Quarter: 2021Q2

REPORT INFORMATION
  Report Type: Spontaneous
  Country: DE (occurrence: DE)
  Receive Date: 20210424
  Receipt Date: 20210504
  Transmission Date: 20210717
  Serious: Yes (Other)
  Sender: FDA-Public Use
  Company Number: DE-ORGANON-2009DEU008721

PATIENT
  Age: 35 Year
  Sex: Female
  Weight: 58 kg

DRUGS (13)
  1. PROGESTERONE. [Suspect]
     Active Substance: PROGESTERONE
     Indication: ASSISTED REPRODUCTIVE TECHNOLOGY
     Dosage: 600 MG IN 1 DAY/200 MG, 3 TIMES DAILY (200 MG,3 IN 1 D)
     Route: 067
     Dates: start: 20200428
  2. MENOTROPHIN [Suspect]
     Active Substance: MENOTROPINS
     Dosage: 75 IE 1.?10. CYCLE DAY, 1 DF IN 1 DAY, HMG (HUMAN MENOPAUSAL GONADOTROPHIN)
     Route: 058
     Dates: start: 20200416, end: 20200426
  3. MENOGON [Suspect]
     Active Substance: MENOTROPINS
     Indication: ASSISTED REPRODUCTIVE TECHNOLOGY
     Dosage: 1?10 CYCLE DAY, 1 (DF) IN 1 DAY (1 IN 1 D)
     Route: 058
     Dates: start: 20200416, end: 20200426
  4. PUREGON (FOLLITROPIN BETA) [Suspect]
     Active Substance: FOLLITROPIN BETA
     Indication: ASSISTED REPRODUCTIVE TECHNOLOGY
     Dosage: 150 IU, 1 TIME DAILY (1 IN 1 D)
     Route: 058
     Dates: start: 20200416, end: 20200426
  5. PROGESTERONE. [Suspect]
     Active Substance: PROGESTERONE
     Dosage: 200 MILLIGRAM, 3 TIMES DAILY (200 MG,3 IN 1 D)
     Route: 067
  6. GONADOTROPIN, CHORIONIC [Suspect]
     Active Substance: CHORIOGONADOTROPIN ALFA
     Indication: OVULATION INDUCTION
     Dosage: 5000 (IU)
     Route: 065
     Dates: start: 20200426, end: 20200426
  7. CHORIONIC GONADOTROPHIN [Suspect]
     Active Substance: CHORIOGONADOTROPIN ALFA
     Indication: ASSISTED REPRODUCTIVE TECHNOLOGY
     Dosage: 5000 [IU] ONCE/SINGLE
     Route: 058
     Dates: start: 20200426, end: 20200426
  8. MENOTROPHIN [Suspect]
     Active Substance: MENOTROPINS
     Indication: ASSISTED REPRODUCTIVE TECHNOLOGY
     Dosage: 150 (IU) IN 1 DAY, 1.?11. CYCLE DAY; FOLLICLE STIMULATING HORMONE (FSH)
     Route: 065
     Dates: start: 20200416
  9. GONADORELIN DIACETATE [Suspect]
     Active Substance: GONADORELIN DIACETATE
     Indication: ASSISTED REPRODUCTIVE TECHNOLOGY
     Dosage: UNK
     Route: 065
     Dates: start: 20200403
  10. DECAPEPTYL (ACETATE) [Suspect]
     Active Substance: TRIPTORELIN ACETATE
     Indication: ASSISTED REPRODUCTIVE TECHNOLOGY
     Dosage: 0.1 MG (0.1 MG,1 D)
     Route: 058
     Dates: start: 20200403, end: 20200426
  11. CHORIONIC GONADOTROPHIN [Suspect]
     Active Substance: CHORIOGONADOTROPIN ALFA
     Indication: OVULATION INDUCTION
  12. GONADORELIN DIACETATE [Suspect]
     Active Substance: GONADORELIN DIACETATE
     Dosage: 1.?11. CYCLE DAY, 0.1 MG IN 1 DAY (1 D)
     Route: 065
     Dates: start: 20200416
  13. HMG [Suspect]
     Active Substance: GONADOTROPHIN, CHORIONIC
     Indication: ASSISTED REPRODUCTIVE TECHNOLOGY
     Dosage: 75 IE, 1?10 CYCLE DAY
     Route: 065
     Dates: start: 20200416

REACTIONS (4)
  - Ovarian hyperstimulation syndrome [Recovered/Resolved]
  - Incorrect route of product administration [Recovered/Resolved]
  - Off label use [Recovered/Resolved]
  - Ascites [Recovered/Resolved]

NARRATIVE: CASE EVENT DATE: 20200426
